FAERS Safety Report 5646098-4 (Version None)
Quarter: 2008Q1

REPORT INFORMATION
  Report Type: 
  Country: None (occurrence: None)
  Receive Date: 20080227
  Receipt Date: 20080215
  Transmission Date: 20080703
  Serious: Yes (Hospitalization)
  Sender: FDA-Public Use
  Company Number: B0507898A

PATIENT
  Age: 83 Year
  Sex: Female
  Weight: 79.8331 kg

DRUGS (12)
  1. VALTREX [Suspect]
     Indication: HERPES ZOSTER
     Dosage: 500 MG / FOUR TIMES PER DAY / ORAL
     Route: 048
     Dates: start: 20080131, end: 20080203
  2. SEVELAMER HYDROCHLORIDE [Concomitant]
  3. NIFEDIPINE [Concomitant]
  4. METOPROLOL TARTRATE [Concomitant]
  5. ATORVASTATIN CALCIUM [Concomitant]
  6. CARBASPIRIN CALCIUM [Concomitant]
  7. CLOPIDOGREL BISULFATE [Concomitant]
  8. ALLOPURINOL [Concomitant]
  9. RAMIPRIL [Concomitant]
  10. LANSOPRAZOLE [Concomitant]
  11. ACETAMINOPHEN [Concomitant]
  12. CHLORTHALIDONE [Concomitant]

REACTIONS (2)
  - DELIRIUM [None]
  - DYSARTHRIA [None]
